FAERS Safety Report 25871176 (Version 1)
Quarter: 2025Q4

REPORT INFORMATION
  Report Type: Report from Study
  Country: US (occurrence: US)
  Receive Date: 20251001
  Receipt Date: 20251001
  Transmission Date: 20260117
  Serious: Yes (Disabling, Other)
  Sender: ABBVIE
  Company Number: US-ABBVIE-6222257

PATIENT
  Age: 73 Year
  Sex: Female

DRUGS (1)
  1. SKYRIZI [Suspect]
     Active Substance: RISANKIZUMAB-RZAA
     Indication: Crohn^s disease
     Route: 058

REACTIONS (14)
  - Hip arthroplasty [Recovered/Resolved]
  - Rehabilitation therapy [Unknown]
  - Upper limb fracture [Unknown]
  - Skin fragility [Unknown]
  - Skin laceration [Unknown]
  - Skin laceration [Recovering/Resolving]
  - Balance disorder [Unknown]
  - Fall [Recovering/Resolving]
  - Osteoarthritis [Not Recovered/Not Resolved]
  - Dehydration [Unknown]
  - Knee operation [Recovered/Resolved]
  - Memory impairment [Unknown]
  - Fall [Unknown]
  - Head injury [Unknown]

NARRATIVE: CASE EVENT DATE: 20170101
